FAERS Safety Report 9013521 (Version 1)
Quarter: 2012Q4

REPORT INFORMATION
  Report Type: Spontaneous
  Country: CN (occurrence: None)
  Receive Date: 20121231
  Receipt Date: 20121231
  Transmission Date: 20130627
  Serious: Yes (Other)
  Sender: FDA-Public Use
  Company Number: VAL_01218_2012

PATIENT
  Sex: Male
  Weight: 85 kg

DRUGS (1)
  1. LOTENSIN /00909102/ (LOTENSIN-BENAZEPRIL HYDROCHLORIDE) (NOT SPECIFIED) [Suspect]
     Indication: HYPERTENSION
     Route: 048
     Dates: start: 20081031, end: 20081102

REACTIONS (2)
  - Liver injury [None]
  - Hepatic function abnormal [None]
